FAERS Safety Report 10224081 (Version 2)
Quarter: 2014Q3

REPORT INFORMATION
  Report Type: Report from Study
  Country: US (occurrence: US)
  Receive Date: 20140609
  Receipt Date: 20140910
  Transmission Date: 20150326
  Serious: Yes (Hospitalization, Other)
  Sender: FDA-Public Use
  Company Number: US-PURDUE-USA-2014-0114637

PATIENT
  Age: 37 Year
  Sex: Male

DRUGS (2)
  1. OXYCONTIN [Suspect]
     Active Substance: OXYCODONE HYDROCHLORIDE
     Indication: PAIN
     Dosage: 160 MG, BID
     Route: 048
     Dates: start: 20130523
  2. OXYCONTIN [Suspect]
     Active Substance: OXYCODONE HYDROCHLORIDE
     Dosage: 160 MG, BID
     Route: 048
     Dates: start: 2007

REACTIONS (7)
  - Pneumonia [Unknown]
  - Diarrhoea [Unknown]
  - T-lymphocyte count decreased [Unknown]
  - Nausea [Unknown]
  - Giardiasis [Unknown]
  - Vomiting [Unknown]
  - HIV infection [Unknown]

NARRATIVE: CASE EVENT DATE: 20140601
